FAERS Safety Report 4842685-1 (Version None)
Quarter: 2005Q4

REPORT INFORMATION
  Report Type: 
  Country: None (occurrence: None)
  Receive Date: 20051129
  Receipt Date: 20051110
  Transmission Date: 20060501
  Serious: Yes (Hospitalization)
  Sender: FDA-Public Use
  Company Number: US200511000052

PATIENT
  Age: 83 Year
  Sex: Female

DRUGS (1)
  1. ALIMTA [Suspect]
     Indication: MESOTHELIOMA
     Dosage: SEE IMAGE
     Route: 065
     Dates: start: 20050601

REACTIONS (3)
  - ASTHENIA [None]
  - FATIGUE [None]
  - PNEUMONIA [None]
